FAERS Safety Report 8779996 (Version 2)
Quarter: 2012Q4

REPORT INFORMATION
  Report Type: 
  Country: US (occurrence: US)
  Receive Date: 20120912
  Receipt Date: 20121018
  Transmission Date: 20130627
  Serious: No
  Sender: FDA-Public Use
  Company Number: US-VERTEX PHARMACEUTICAL INC.-AE-2012-000709

PATIENT
  Age: 50 Year
  Sex: Female

DRUGS (4)
  1. VX-950 [Suspect]
     Indication: HEPATITIS C
     Dosage: 750 mg, tid
     Route: 048
     Dates: start: 20111102, end: 20120125
  2. RIBAVIRIN [Concomitant]
     Indication: HEPATITIS C
     Dosage: 1200 mg, UNK
     Route: 048
     Dates: start: 20111102
  3. RIBAVIRIN [Concomitant]
     Dosage: 600 mg, UNK
     Route: 048
     Dates: start: 201204, end: 20120702
  4. PEGASYS [Concomitant]
     Indication: HEPATITIS C
     Dosage: 180 ?g, qw
     Route: 058
     Dates: start: 20111102, end: 20120702

REACTIONS (3)
  - Fatigue [Not Recovered/Not Resolved]
  - Anaemia [Not Recovered/Not Resolved]
  - Nausea [Not Recovered/Not Resolved]
